FAERS Safety Report 4273173-1 (Version None)
Quarter: 2004Q1

REPORT INFORMATION
  Report Type: 
  Country: None (occurrence: None)
  Receive Date: 20040116
  Receipt Date: 20031209
  Transmission Date: 20041129
  Serious: Yes (Other)
  Sender: FDA-Public Use
  Company Number: WAES 0312USA01087

PATIENT
  Age: 80 Year
  Sex: Female
  Weight: 66 kg

DRUGS (4)
  1. FOSAMAX [Concomitant]
     Route: 048
  2. NORVASC [Concomitant]
     Route: 048
  3. MULTIVITAMIN [Concomitant]
     Route: 048
  4. VIOXX [Suspect]
     Route: 048
     Dates: start: 20031101, end: 20030101

REACTIONS (3)
  - CELLULITIS [None]
  - ECCHYMOSIS [None]
  - MENISCUS LESION [None]
